FAERS Safety Report 8181905-5 (Version None)
Quarter: 2012Q1

REPORT INFORMATION
  Report Type: 
  Country: None (occurrence: None)
  Receive Date: 20120302
  Receipt Date: 20120301
  Transmission Date: 20120608
  Serious: Yes (Other)
  Sender: FDA-Public Use
  Company Number: DE-ROCHE-645776

PATIENT
  Sex: Female
  Weight: 78.6 kg

DRUGS (2)
  1. METHOTREXATE [Suspect]
     Indication: PRODUCT USED FOR UNKNOWN INDICATION
     Route: 065
  2. MABTHERA [Suspect]
     Indication: RHEUMATOID ARTHRITIS
     Dosage: FORM: INFUSION; LAST DOSE PRIOR TO EVENT ON 04 SEP 09; FREQUENCY: 1 X
     Route: 042

REACTIONS (2)
  - ACUTE TONSILLITIS [None]
  - BURSITIS [None]
